FAERS Safety Report 23630761 (Version 2)
Quarter: 2024Q1

REPORT INFORMATION
  Report Type: Spontaneous
  Country: JP (occurrence: JP)
  Receive Date: 20240314
  Receipt Date: 20240325
  Transmission Date: 20240410
  Serious: Yes (Hospitalization, Other)
  Sender: FDA-Public Use
  Company Number: JP-BAXTER-2024BAX014579

PATIENT
  Age: 79 Year
  Sex: Male
  Weight: 53 kg

DRUGS (4)
  1. REGUNEAL LCA [Suspect]
     Active Substance: CALCIUM CHLORIDE\DEXTROSE MONOHYDRATE\HYDROCHLORIC ACID\MAGNESIUM CHLORIDE\SODIUM BICARBONATE\SODIUM
     Indication: Renal replacement therapy
     Dosage: 2 BAGS OF 5L/DAY
     Route: 033
     Dates: start: 20210715, end: 20231204
  2. REGUNEAL LCA [Suspect]
     Active Substance: CALCIUM CHLORIDE\DEXTROSE MONOHYDRATE\HYDROCHLORIC ACID\MAGNESIUM CHLORIDE\SODIUM BICARBONATE\SODIUM
     Dosage: 2 BAGS OF 5L/DAY (DOSE RE-INTRODUCED)
     Route: 033
     Dates: start: 20240301
  3. EXTRANEAL [Suspect]
     Active Substance: CALCIUM CHLORIDE\ICODEXTRIN\MAGNESIUM CHLORIDE\SODIUM CHLORIDE\SODIUM LACTATE
     Indication: Renal replacement therapy
     Dosage: 1 BAG OF 1.5L/DAY
     Route: 033
     Dates: start: 20210715, end: 20231204
  4. EXTRANEAL [Suspect]
     Active Substance: CALCIUM CHLORIDE\ICODEXTRIN\MAGNESIUM CHLORIDE\SODIUM CHLORIDE\SODIUM LACTATE
     Dosage: 1 BAG OF 1.5L/DAY (DOSE RE-INTRODUCED)
     Route: 033
     Dates: start: 20240301

REACTIONS (2)
  - Pseudomonas peritonitis [Recovered/Resolved]
  - Peritoneal cloudy effluent [Recovered/Resolved]
